FAERS Safety Report 4893553-0 (Version None)
Quarter: 2006Q1

REPORT INFORMATION
  Report Type: 
  Country: None (occurrence: None)
  Receive Date: 20060124
  Receipt Date: 20060110
  Transmission Date: 20060701
  Serious: Yes (Death)
  Sender: FDA-Public Use
  Company Number: HQWYE156327DEC05

PATIENT
  Age: 31 Year
  Sex: Male

DRUGS (9)
  1. MYLOTARG [Suspect]
     Indication: ACUTE MYELOID LEUKAEMIA
     Dosage: A SINGLE 15 MG DOSE
     Route: 041
     Dates: start: 20051130, end: 20051130
  2. ETOPOSIDE [Concomitant]
  3. OMEPRAZOLE [Concomitant]
  4. DIFLUCAN (FLUCONAZOLE) [Concomitant]
  5. CLOSTRIDIUM BUTYRICUM              (CLOSTRIDIUM BUTYRICUM) [Concomitant]
  6. CYTARABINE [Suspect]
     Indication: ACUTE MYELOID LEUKAEMIA
     Dosage: HIGH -DOSE
     Route: 042
     Dates: start: 20051122, end: 20051127
  7. MINOPEN       (MINOCYCLINE HYDROCHLORIDE) [Concomitant]
  8. HABEKACIN             (ARBEKACIN) [Concomitant]
  9. GRAN (FILGRASTIM) [Concomitant]

REACTIONS (4)
  - ACUTE MYELOID LEUKAEMIA [None]
  - INFUSION RELATED REACTION [None]
  - MALIGNANT NEOPLASM PROGRESSION [None]
  - SEPSIS [None]
